FAERS Safety Report 8517663-1 (Version None)
Quarter: 2012Q3

REPORT INFORMATION
  Report Type: 
  Country: None (occurrence: None)
  Receive Date: 20120718
  Receipt Date: 20120709
  Transmission Date: 20120928
  Serious: Yes (Hospitalization)
  Sender: FDA-Public Use
  Company Number: US-ASTRAZENECA-2012SE34573

PATIENT
  Age: 67 Year
  Sex: Male
  Weight: 64.4 kg

DRUGS (4)
  1. PLAVIX [Concomitant]
     Dates: start: 20120425
  2. ASPIRIN [Concomitant]
     Dosage: LOW DOSE
  3. BRILINTA [Suspect]
     Route: 048
  4. PLAVIX [Concomitant]
     Dates: start: 20120401

REACTIONS (7)
  - HAEMATURIA [None]
  - HAEMATOMA [None]
  - BENIGN PROSTATIC HYPERPLASIA [None]
  - BENIGN NEOPLASM OF PROSTATE [None]
  - HAEMORRHAGE [None]
  - DYSLIPIDAEMIA [None]
  - CONSTIPATION [None]
